FAERS Safety Report 8890605 (Version 2)
Quarter: 2012Q4

REPORT INFORMATION
  Report Type: Report from Study
  Country: US (occurrence: US)
  Receive Date: 20121107
  Receipt Date: 20121129
  Transmission Date: 20130627
  Serious: Yes (Other)
  Sender: FDA-Public Use
  Company Number: US-JNJFOC-20121100012

PATIENT
  Age: 64 Year
  Sex: Female
  Weight: 107.05 kg

DRUGS (32)
  1. REMICADE [Suspect]
     Indication: COLITIS ULCERATIVE
     Route: 042
     Dates: start: 20100318
  2. REMICADE [Suspect]
     Indication: COLITIS ULCERATIVE
     Route: 042
     Dates: start: 20061218, end: 20080722
  3. REMICADE [Suspect]
     Indication: COLITIS ULCERATIVE
     Route: 042
     Dates: start: 20110217, end: 20120823
  4. LYRICA [Concomitant]
     Route: 048
  5. ASPIRIN [Concomitant]
  6. ASACOL [Concomitant]
  7. BACLOFEN [Concomitant]
  8. COMBIVENT [Concomitant]
  9. CYANOCOBALAMIN [Concomitant]
     Route: 050
  10. CYCLOBENZAPRINE [Concomitant]
  11. DIPHENOXYLATE-ATROPINE [Concomitant]
  12. DONNATAL [Concomitant]
  13. HYDROCODONE-ACETAMINOPHEN [Concomitant]
  14. HYDROCORTISONE W/PRAMOXINE [Concomitant]
  15. HYOSCYAMINE [Concomitant]
  16. JANUVIA [Concomitant]
     Route: 048
  17. LANTUS [Concomitant]
  18. LASIX [Concomitant]
  19. LEVOTHYROXINE [Concomitant]
     Route: 048
  20. LOPRESSOR [Concomitant]
     Route: 048
  21. MERCAPTOPURINE [Concomitant]
     Route: 048
  22. METHSCOPOLAMINE BROMIDE [Concomitant]
     Route: 048
  23. METOPROLOL TARTRATE [Concomitant]
     Route: 048
  24. NITROGLYCERIN [Concomitant]
     Route: 060
  25. OMEPRAZOLE [Concomitant]
  26. OPTIVAR [Concomitant]
     Route: 047
  27. POTASSIUM [Concomitant]
     Route: 048
  28. REQUIP [Concomitant]
     Route: 048
  29. SIMVASTATIN [Concomitant]
     Route: 048
  30. SINGULAIR [Concomitant]
     Route: 048
  31. TRAMADOL [Concomitant]
     Route: 048
  32. VICTOZA [Concomitant]

REACTIONS (1)
  - Ovarian cancer metastatic [Not Recovered/Not Resolved]
